FAERS Safety Report 5598026-8 (Version None)
Quarter: 2008Q1

REPORT INFORMATION
  Report Type: 
  Country: None (occurrence: None)
  Receive Date: 20080122
  Receipt Date: 20080111
  Transmission Date: 20080703
  Serious: Yes (Other)
  Sender: FDA-Public Use
  Company Number: DE-WYE-H02144108

PATIENT
  Sex: Male

DRUGS (2)
  1. PANTOZOL [Suspect]
     Indication: GASTRITIS
     Route: 048
     Dates: start: 20080103
  2. LANSOPRAZOLE [Concomitant]
     Dosage: UNKNOWN
     Route: 065

REACTIONS (6)
  - HAEMODYNAMIC INSTABILITY [None]
  - HYPERSENSITIVITY [None]
  - LIP SWELLING [None]
  - PRURITUS [None]
  - SWOLLEN TONGUE [None]
  - URTICARIA [None]
